FAERS Safety Report 11087362 (Version 1)
Quarter: 2015Q2

REPORT INFORMATION
  Report Type: Spontaneous
  Country: US (occurrence: None)
  Receive Date: 20150501
  Receipt Date: 20150501
  Transmission Date: 20150821
  Serious: Yes (Other)
  Sender: FDA-Public Use
  Company Number: None

PATIENT
  Age: 12 Year
  Sex: Female

DRUGS (2)
  1. SUPPRELIN LA [Suspect]
     Active Substance: HISTRELIN ACETATE
     Indication: BODY HEIGHT BELOW NORMAL
     Dates: start: 20150129, end: 20150202
  2. SUPPRELIN LA [Suspect]
     Active Substance: HISTRELIN ACETATE
     Indication: PRECOCIOUS PUBERTY
     Dates: start: 20150129, end: 20150202

REACTIONS (4)
  - Application site rash [None]
  - Drug administration error [None]
  - Implant site rash [None]
  - Product quality issue [None]

NARRATIVE: CASE EVENT DATE: 20150129
